FAERS Safety Report 10839788 (Version 1)
Quarter: 2015Q1

REPORT INFORMATION
  Report Type: Report from Study
  Country: US (occurrence: US)
  Receive Date: 20150220
  Receipt Date: 20150220
  Transmission Date: 20150721
  Serious: No
  Sender: FDA-Public Use
  Company Number: US-ABBVIE-14P-163-1246236-00

PATIENT
  Age: 18 Year
  Sex: Female
  Weight: 57.2 kg

DRUGS (3)
  1. NEXOLON [Concomitant]
     Indication: CONTRACEPTION
  2. PENTASA [Concomitant]
     Active Substance: MESALAMINE
     Indication: COLITIS ULCERATIVE
  3. HUMIRA [Suspect]
     Active Substance: ADALIMUMAB
     Indication: COLITIS ULCERATIVE
     Dates: start: 20140609

REACTIONS (3)
  - Injection site haemorrhage [Recovered/Resolved]
  - Device issue [Unknown]
  - Underdose [Recovered/Resolved]

NARRATIVE: CASE EVENT DATE: 20140609
